FAERS Safety Report 6786507-0 (Version None)
Quarter: 2010Q2

REPORT INFORMATION
  Report Type: 
  Country: None (occurrence: None)
  Receive Date: 20100623
  Receipt Date: 20100504
  Transmission Date: 20101027
  Serious: Yes (Hospitalization)
  Sender: FDA-Public Use
  Company Number: B0661569A

PATIENT
  Age: 47 Year
  Sex: Female

DRUGS (22)
  1. ONDANSETRON [Suspect]
     Indication: VOMITING
     Dates: start: 20100325
  2. MORPHINE [Suspect]
     Indication: PAIN
     Dates: start: 20100404, end: 20100415
  3. DIAZEPAM [Suspect]
     Dates: start: 20100415
  4. STUDY DRUG [Suspect]
     Indication: OVARIAN CANCER
     Dosage: 1080MG CYCLIC
     Route: 042
     Dates: start: 20100409, end: 20100409
  5. DOXORUBICIN HCL [Suspect]
     Indication: OVARIAN CANCER
     Dosage: 61.76MG CYCLIC
     Route: 042
     Dates: start: 20100409, end: 20100409
  6. PHENTANYL [Suspect]
     Indication: PAIN
     Dates: start: 20100313
  7. LORAZEPAM [Suspect]
     Dates: start: 20080101
  8. FLUOXETINE HYDROCHLORIDE [Suspect]
     Dates: start: 20080101
  9. TRAZODONE HYDROCHLORIDE [Suspect]
     Dates: start: 20100315
  10. HALOPERIDOL [Suspect]
     Dates: start: 20100401, end: 20100422
  11. NULYTELY [Concomitant]
     Indication: CONSTIPATION PROPHYLAXIS
  12. ENOXAPARIN SODIUM [Concomitant]
  13. COTRIM [Concomitant]
  14. HYDROCORTISONE [Concomitant]
     Indication: PAIN
     Dates: start: 20100325, end: 20100325
  15. DEXAMETHASONE ACETATE [Concomitant]
     Indication: PAIN
     Dates: start: 20100331
  16. OMEPRAZOLE [Concomitant]
     Dates: start: 20080101
  17. PARACETAMOL [Concomitant]
     Dates: start: 20100331
  18. AUGMENTIN '125' [Concomitant]
     Dates: start: 20100331, end: 20100411
  19. UROKINASE [Concomitant]
     Dates: start: 20100415, end: 20100415
  20. BLOOD TRANSFUSION [Concomitant]
     Dates: start: 20100331, end: 20100331
  21. ESCITALOPRAM [Concomitant]
  22. PAROXETINE HCL [Concomitant]

REACTIONS (5)
  - BRADYPHRENIA [None]
  - PYREXIA [None]
  - SOMNOLENCE [None]
  - STAPHYLOCOCCAL INFECTION [None]
  - URINARY TRACT INFECTION [None]
